FAERS Safety Report 14375024 (Version 4)
Quarter: 2018Q2

REPORT INFORMATION
  Report Type: Spontaneous
  Country: US (occurrence: US)
  Receive Date: 20180111
  Receipt Date: 20180404
  Transmission Date: 20180711
  Serious: No
  Sender: FDA-Public Use
  Company Number: US-PFIZER INC-2017390851

PATIENT
  Age: 65 Year
  Sex: Female

DRUGS (1)
  1. IBRANCE [Suspect]
     Active Substance: PALBOCICLIB
     Indication: BREAST CANCER FEMALE
     Dosage: 125 MG, CYCLIC, (EVERY DAY FOR 21 DAYS AND OFF FOR 7 DAYS EVERY MONTH)
     Route: 048
     Dates: start: 201707

REACTIONS (6)
  - Depression [Unknown]
  - Chills [Unknown]
  - Cough [Unknown]
  - Crying [Unknown]
  - Inappropriate schedule of drug administration [Unknown]
  - Anxiety [Unknown]

NARRATIVE: CASE EVENT DATE: 20180329
